FAERS Safety Report 15226920 (Version 2)
Quarter: 2018Q3

REPORT INFORMATION
  Report Type: Spontaneous
  Country: US (occurrence: US)
  Receive Date: 20180801
  Receipt Date: 20180822
  Transmission Date: 20181010
  Serious: No
  Sender: FDA-Public Use
  Company Number: US-BAUSCH-BL-2018-020390

PATIENT
  Age: 72 Year
  Sex: Female
  Weight: 45.4 kg

DRUGS (6)
  1. BRIMONIDINE TARTRATE OPHTHALMIC SOLUTION 0.2% [Suspect]
     Active Substance: BRIMONIDINE TARTRATE
     Indication: OPEN ANGLE GLAUCOMA
     Dosage: SOMETIME IN 2008 OR ^^PERHAPS EARLIER THAN 2008^^; 1 DROP IN THE RIGHT
     Route: 047
  2. BRIMONIDINE TARTRATE OPHTHALMIC SOLUTION 0.2% [Suspect]
     Active Substance: BRIMONIDINE TARTRATE
     Dosage: SWITCHED BACK TO USING AN OLD BOTTLE OF THE PRODUCT FOR TWO DAYS, THEN STARTED USING A NEW BOTTLE
     Route: 047
     Dates: start: 201807
  3. AZOPT [Concomitant]
     Active Substance: BRINZOLAMIDE
     Indication: PRODUCT USED FOR UNKNOWN INDICATION
     Dosage: TID
     Route: 047
  4. LATANOPROST. [Concomitant]
     Active Substance: LATANOPROST
     Indication: PRODUCT USED FOR UNKNOWN INDICATION
     Dosage: QD
     Route: 047
  5. BRIMONIDINE TARTRATE OPHTHALMIC SOLUTION 0.2% [Suspect]
     Active Substance: BRIMONIDINE TARTRATE
     Dosage: NEW BOTTLE
     Route: 047
     Dates: end: 201807
  6. EQUATE PRESERVATIVE?FREE ARTIFICIAL TEARS [Concomitant]
     Indication: PRODUCT USED FOR UNKNOWN INDICATION
     Route: 047

REACTIONS (2)
  - Intraocular pressure increased [Unknown]
  - Product storage error [Recovered/Resolved]

NARRATIVE: CASE EVENT DATE: 20180716
